FAERS Safety Report 6859430-0 (Version None)
Quarter: 2010Q3

REPORT INFORMATION
  Report Type: 
  Country: None (occurrence: None)
  Receive Date: 20100719
  Receipt Date: 20080225
  Transmission Date: 20110219
  Serious: No
  Sender: FDA-Public Use
  Company Number: US-PFIZER INC-2008020452

PATIENT
  Sex: Male
  Weight: 111.4 kg

DRUGS (2)
  1. CHANTIX [Suspect]
     Indication: SMOKING CESSATION THERAPY
     Dates: start: 20080223
  2. METHADONE HCL [Interacting]
     Indication: BACK INJURY
     Dates: start: 19980101

REACTIONS (6)
  - DRUG INTERACTION [None]
  - FORMICATION [None]
  - HOT FLUSH [None]
  - HYPERHIDROSIS [None]
  - NERVOUSNESS [None]
  - TACHYCARDIA [None]
